FAERS Safety Report 9769599 (Version 2)
Quarter: 2013Q4

REPORT INFORMATION
  Report Type: Spontaneous
  Country: JP (occurrence: JP)
  Receive Date: 20131218
  Receipt Date: 20131224
  Transmission Date: 20140711
  Serious: Yes (Other)
  Sender: FDA-Public Use
  Company Number: JP-JNJFOC-20131209102

PATIENT
  Age: 84 Year
  Sex: Female

DRUGS (3)
  1. RISPERDAL [Suspect]
     Indication: SCHIZOPHRENIA
     Route: 048
  2. RISPERIDONE [Suspect]
     Indication: SCHIZOPHRENIA
     Route: 048
  3. REMINYL [Concomitant]
     Route: 048

REACTIONS (3)
  - Suicide attempt [Recovered/Resolved]
  - Dyskinesia [Recovering/Resolving]
  - Off label use [Unknown]
